FAERS Safety Report 10050630 (Version 1)
Quarter: 2014Q2

REPORT INFORMATION
  Report Type: Spontaneous
  Country: US (occurrence: US)
  Receive Date: 20140401
  Receipt Date: 20140401
  Transmission Date: 20141212
  Serious: No
  Sender: FDA-Public Use
  Company Number: US-ASTRAZENECA-2013SE61078

PATIENT
  Age: 62 Year
  Sex: Female
  Weight: 68 kg

DRUGS (5)
  1. NEXIUM [Suspect]
     Indication: DYSPEPSIA
     Route: 048
     Dates: start: 2009
  2. NEXIUM [Suspect]
     Indication: DYSPEPSIA
     Dosage: EVERY OTHER DAY
     Route: 048
  3. ELIMRON [Concomitant]
     Indication: CYSTITIS
     Dosage: PRN
  4. HYDROCORTISONE [Concomitant]
     Dosage: PRN
  5. FLUOCINIDE [Concomitant]
     Dosage: PRN

REACTIONS (3)
  - Lichen planus [Unknown]
  - Disease recurrence [Unknown]
  - Intentional product misuse [Unknown]
